FAERS Safety Report 24981187 (Version 1)
Quarter: 2025Q1

REPORT INFORMATION
  Report Type: Spontaneous
  Country: PL (occurrence: PL)
  Receive Date: 20250218
  Receipt Date: 20250218
  Transmission Date: 20250408
  Serious: Yes (Other)
  Sender: BRISTOL-MYERS SQUIBB COMPANY
  Company Number: PL-BRISTOL-MYERS SQUIBB COMPANY-2025-020183

PATIENT
  Age: 75 Year
  Sex: Female
  Weight: 103 kg

DRUGS (4)
  1. NIVOLUMAB [Suspect]
     Active Substance: NIVOLUMAB
     Indication: Lung neoplasm malignant
     Route: 042
     Dates: start: 20231012
  2. IPILIMUMAB [Suspect]
     Active Substance: IPILIMUMAB
     Indication: Lung neoplasm malignant
     Route: 042
     Dates: start: 20231012
  3. PACLITAXEL [Suspect]
     Active Substance: PACLITAXEL
     Indication: Lung neoplasm malignant
     Dates: start: 20231012
  4. CARBOPLATIN [Suspect]
     Active Substance: CARBOPLATIN
     Indication: Lung neoplasm malignant
     Dates: start: 20231012

REACTIONS (4)
  - Malignant neoplasm progression [Unknown]
  - Demyelination [Recovering/Resolving]
  - Prescribed underdose [Unknown]
  - Neurodegenerative disorder [Recovering/Resolving]

NARRATIVE: CASE EVENT DATE: 20250101
